FAERS Safety Report 18724798 (Version 1)
Quarter: 2021Q1

REPORT INFORMATION
  Report Type: Spontaneous
  Country: US (occurrence: US)
  Receive Date: 20210111
  Receipt Date: 20210111
  Transmission Date: 20210419
  Serious: Yes (Hospitalization)
  Sender: FDA-Public Use
  Company Number: US-MYLANLABS-2021M1000554

PATIENT
  Age: 36 Year
  Sex: Female

DRUGS (3)
  1. DOXORUBICIN [Concomitant]
     Active Substance: DOXORUBICIN
     Indication: NEUROFIBROMA
     Dosage: UNK
     Route: 065
  2. IFOSFAMIDE. [Suspect]
     Active Substance: IFOSFAMIDE
     Indication: NEUROFIBROMA
     Dosage: DOSE: 5 GM/M2
     Route: 065
  3. MESNA. [Suspect]
     Active Substance: MESNA
     Indication: CYSTITIS HAEMORRHAGIC
     Dosage: UNK
     Route: 065

REACTIONS (3)
  - Fanconi syndrome acquired [Unknown]
  - Off label use [Unknown]
  - Renal tubular injury [Not Recovered/Not Resolved]
